FAERS Safety Report 6576420-6 (Version None)
Quarter: 2010Q1

REPORT INFORMATION
  Report Type: 
  Country: None (occurrence: None)
  Receive Date: 20100210
  Receipt Date: 20100202
  Transmission Date: 20100710
  Serious: Yes (Hospitalization, Other)
  Sender: FDA-Public Use
  Company Number: GB-ASTRAZENECA-2010SE04584

PATIENT
  Age: 75 Year
  Sex: Male
  Weight: 80 kg

DRUGS (3)
  1. ROSUVASTATIN [Suspect]
     Indication: ANGINA PECTORIS
     Route: 048
     Dates: start: 20061103, end: 20100114
  2. ASPIRIN [Concomitant]
  3. SOTALOL HYDROCHLORIDE [Concomitant]

REACTIONS (2)
  - MIGRAINE WITH AURA [None]
  - URINE ODOUR ABNORMAL [None]
